FAERS Safety Report 5853276-8 (Version None)
Quarter: 2008Q3

REPORT INFORMATION
  Report Type: 
  Country: None (occurrence: None)
  Receive Date: 20080821
  Receipt Date: 20080818
  Transmission Date: 20090109
  Serious: Yes (Other)
  Sender: FDA-Public Use
  Company Number: CA-AMGEN-KDL265990

PATIENT
  Sex: Female

DRUGS (4)
  1. KINERET [Suspect]
     Indication: JUVENILE ARTHRITIS
     Route: 058
     Dates: start: 20030910
  2. METHOTREXATE SODIUM [Concomitant]
     Dates: start: 20050404, end: 20070409
  3. CORTISONE [Concomitant]
     Dates: start: 20020101, end: 20050314
  4. PLAQUENIL [Concomitant]
     Dates: end: 20071001

REACTIONS (3)
  - ABORTION SPONTANEOUS [None]
  - ARTHRITIS [None]
  - ECTOPIC PREGNANCY [None]
